FAERS Safety Report 9515311 (Version 1)
Quarter: 2013Q1

REPORT INFORMATION
  Report Type: Spontaneous
  Country: US (occurrence: None)
  Receive Date: 20130305
  Receipt Date: 20130305
  Transmission Date: 20140127
  Serious: Yes (Other)
  Sender: FDA-Public Use
  Company Number: 163-21880-12103023

PATIENT
  Age: 80 Year
  Sex: Male
  Weight: 83.01 kg

DRUGS (12)
  1. REVLIMID [Suspect]
     Indication: PLASMA CELL MYELOMA
     Dosage: 15 MG, 1 IN 1 D, PO
     Route: 048
     Dates: start: 200911
  2. VITAMIN D3 (COLECALCIFEROL) [Concomitant]
  3. VITAMIN C [Concomitant]
  4. VALTREX (VALACICLOVIR HYDROCHLORIDE) [Concomitant]
  5. OMEGA 3 (FISH OIL) [Concomitant]
  6. MULTIVITAMIN (MULTIVITAMINS) [Concomitant]
  7. FLAGYL (METRONIDAZOLE) [Concomitant]
  8. LISINOPRIL (LISINOPRIL) [Concomitant]
  9. METFORMIN (METFORMIN) [Concomitant]
  10. EYE HEALTH (OTHER THERAPEUTIC PRODUCTS) [Concomitant]
  11. ATENOLOL (ATENOLOL) [Concomitant]
  12. CALCIUM (CALCIUM) [Concomitant]

REACTIONS (1)
  - Clostridium difficile infection [None]
